FAERS Safety Report 18552799 (Version 1)
Quarter: 2020Q4

REPORT INFORMATION
  Report Type: Spontaneous
  Country: US (occurrence: US)
  Receive Date: 20201127
  Receipt Date: 20201127
  Transmission Date: 20210114
  Serious: Yes (Hospitalization, Other)
  Sender: FDA-Public Use
  Company Number: US-AUROBINDO-AUR-APL-2020-057587

PATIENT
  Age: 56 Year
  Sex: Female

DRUGS (2)
  1. METHADONE [Suspect]
     Active Substance: METHADONE HYDROCHLORIDE
     Indication: PRODUCT USED FOR UNKNOWN INDICATION
     Dosage: 60 MILLIGRAM, ONCE A DAY
     Route: 048
  2. METHADONE [Suspect]
     Active Substance: METHADONE HYDROCHLORIDE
     Dosage: 2.4 GRAM, TOTAL
     Route: 048

REACTIONS (4)
  - Intentional overdose [Recovered/Resolved]
  - Cardiotoxicity [Recovered/Resolved]
  - Acute right ventricular failure [Recovered/Resolved]
  - Suicide attempt [Recovered/Resolved]
